FAERS Safety Report 9138852 (Version 2)
Quarter: 2013Q2

REPORT INFORMATION
  Report Type: Spontaneous
  Country: US (occurrence: US)
  Receive Date: 20130305
  Receipt Date: 20130411
  Transmission Date: 20140414
  Serious: Yes (Death)
  Sender: FDA-Public Use
  Company Number: US-PFIZER INC-2013073087

PATIENT
  Age: 86 Year
  Sex: Female

DRUGS (1)
  1. SUTENT [Suspect]
     Dosage: 25 MG, UNK

REACTIONS (2)
  - Disease progression [Fatal]
  - Neoplasm malignant [Fatal]
